FAERS Safety Report 17031750 (Version 1)
Quarter: 2019Q4

REPORT INFORMATION
  Report Type: Spontaneous
  Country: US (occurrence: US)
  Receive Date: 20191113
  Receipt Date: 20191113
  Transmission Date: 20200122
  Serious: Yes (Death, Life-Threatening, Hospitalization)
  Sender: FDA-Public Use
  Company Number: None

PATIENT
  Age: 47 Year
  Sex: Male
  Weight: 73.6 kg

DRUGS (1)
  1. YESCARTA [Suspect]
     Active Substance: AXICABTAGENE CILOLEUCEL
     Indication: DIFFUSE LARGE B-CELL LYMPHOMA
     Dosage: ?          OTHER FREQUENCY:ONCE;?
     Route: 042
     Dates: start: 20190930, end: 20190930

REACTIONS (22)
  - Gastrointestinal haemorrhage [None]
  - Neutropenia [None]
  - Thrombocytopenia [None]
  - Cardiac arrest [None]
  - Disease progression [None]
  - Acute respiratory failure [None]
  - Bacteraemia [None]
  - Respiratory failure [None]
  - Pseudomonas infection [None]
  - Peritonitis [None]
  - Subclavian vein thrombosis [None]
  - Brachiocephalic vein thrombosis [None]
  - Lymphoma [None]
  - Packed red blood cell transfusion [None]
  - Escherichia infection [None]
  - Neoplasm progression [None]
  - Platelet transfusion [None]
  - Cytokine release syndrome [None]
  - Clostridium difficile colitis [None]
  - Shock [None]
  - Candida infection [None]
  - Candida endophthalmitis [None]

NARRATIVE: CASE EVENT DATE: 20191030
